FAERS Safety Report 20700956 (Version 1)
Quarter: 2022Q2

REPORT INFORMATION
  Report Type: Spontaneous
  Country: US (occurrence: US)
  Receive Date: 20220412
  Receipt Date: 20220412
  Transmission Date: 20220721
  Serious: No
  Sender: FDA-Public Use
  Company Number: US-PFIZER INC-2020509236

PATIENT
  Age: 76 Year
  Sex: Female

DRUGS (2)
  1. IBRANCE [Suspect]
     Active Substance: PALBOCICLIB
     Indication: Breast cancer female
     Dosage: 100 MG, CYCLIC (DAYS 1-21 OF 28)
     Dates: start: 20180112, end: 20201222
  2. IBRANCE [Suspect]
     Active Substance: PALBOCICLIB
     Indication: Osteoporotic fracture
     Dosage: 100 MG, CYCLIC (QD FOR 21 DAYS)
     Dates: start: 20180112

REACTIONS (1)
  - Platelet count decreased [Unknown]
